FAERS Safety Report 12120705 (Version 1)
Quarter: 2016Q1

REPORT INFORMATION
  Report Type: Spontaneous
  Country: None (occurrence: US)
  Receive Date: 20160226
  Receipt Date: 20160226
  Transmission Date: 20160526
  Serious: No
  Sender: FDA-Public Use
  Company Number: US-ALLERGAN-1319822US

PATIENT
  Sex: Male

DRUGS (2)
  1. EYE DROP NOS [Concomitant]
     Active Substance: UNSPECIFIED INGREDIENT
     Indication: POSTOPERATIVE CARE
     Dosage: UNK
  2. REFRESH OPTIVE SENSITIVE [Suspect]
     Active Substance: CARBOXYMETHYLCELLULOSE SODIUM\GLYCERIN
     Indication: DRY EYE
     Dosage: 2 GTT, QD
     Route: 047
     Dates: start: 20131216, end: 20131217

REACTIONS (1)
  - Foreign body sensation in eyes [Recovered/Resolved]

NARRATIVE: CASE EVENT DATE: 20131216
